FAERS Safety Report 23977839 (Version 2)
Quarter: 2024Q4

REPORT INFORMATION
  Report Type: Spontaneous
  Country: US (occurrence: US)
  Receive Date: 20240614
  Receipt Date: 20241209
  Transmission Date: 20250115
  Serious: No
  Sender: ARGENX BVBA
  Company Number: US-ARGENX-2024-ARGX-US004203

PATIENT

DRUGS (1)
  1. EFGARTIGIMOD ALFA-FCAB [Suspect]
     Active Substance: EFGARTIGIMOD ALFA-FCAB
     Indication: Myasthenia gravis
     Dosage: UNK, 30 DAYS BETWEEN CYCLES
     Route: 042

REACTIONS (2)
  - Symptom recurrence [Not Recovered/Not Resolved]
  - Drug ineffective [Not Recovered/Not Resolved]

NARRATIVE: CASE EVENT DATE: 20240101
